FAERS Safety Report 16137712 (Version 1)
Quarter: 2019Q2

REPORT INFORMATION
  Report Type: Spontaneous
  Country: SE (occurrence: SE)
  Receive Date: 20190401
  Receipt Date: 20190401
  Transmission Date: 20190711
  Serious: Yes (Death)
  Sender: FDA-Public Use
  Company Number: SE-TEVA-2019-SE-1031311

PATIENT
  Age: 71 Year
  Sex: Male
  Weight: 78 kg

DRUGS (5)
  1. CLOPIDOGREL [Suspect]
     Active Substance: CLOPIDOGREL BISULFATE
     Indication: ACUTE MYOCARDIAL INFARCTION
     Dosage: 300 MG
     Dates: start: 201902, end: 201902
  2. METALYSE [Suspect]
     Active Substance: TENECTEPLASE
     Indication: ACUTE MYOCARDIAL INFARCTION
     Dosage: 40 MG
     Dates: start: 201902, end: 201902
  3. KLEXANE [Suspect]
     Active Substance: ENOXAPARIN
     Indication: ACUTE MYOCARDIAL INFARCTION
     Dosage: 0.8 ML
     Route: 058
     Dates: start: 201902, end: 201902
  4. KLEXANE [Suspect]
     Active Substance: ENOXAPARIN
     Dosage: 30 MG
     Route: 042
     Dates: start: 201902, end: 201902
  5. TROMBYL [Suspect]
     Active Substance: ASPIRIN
     Indication: ACUTE MYOCARDIAL INFARCTION
     Dosage: 300 MG
     Dates: start: 201902, end: 201902

REACTIONS (1)
  - Cerebral haemorrhage [Fatal]

NARRATIVE: CASE EVENT DATE: 201902
